FAERS Safety Report 5881223-1 (Version None)
Quarter: 2008Q3

REPORT INFORMATION
  Report Type: 
  Country: None (occurrence: None)
  Receive Date: 20080911
  Receipt Date: 20080903
  Transmission Date: 20090109
  Serious: Yes (Hospitalization)
  Sender: FDA-Public Use
  Company Number: TPA2008A01327

PATIENT
  Age: 72 Year
  Sex: Female
  Weight: 53.978 kg

DRUGS (17)
  1. PIOGLITAZONE HCL [Suspect]
     Indication: CARDIOVASCULAR EVENT PROPHYLAXIS
     Dosage: 1 IN 1 D, PER ORAL
     Route: 048
     Dates: start: 20060510, end: 20080806
  2. NEXIUM [Concomitant]
  3. LISINOPRIL [Concomitant]
  4. LIPITOR [Concomitant]
  5. LASIX [Concomitant]
  6. ASPIRIN [Concomitant]
  7. BONIVA [Concomitant]
  8. DETROL LA [Concomitant]
  9. DILTIAZEM [Concomitant]
  10. IRON (IRON) [Concomitant]
  11. FOLIC ACID [Concomitant]
  12. PLAVIX [Concomitant]
  13. REMERON [Concomitant]
  14. ZETIA [Concomitant]
  15. TRILEPTAL [Concomitant]
  16. VICODINE (PARACETAMOL, HYDROCODONE BITARTRATE) [Concomitant]
  17. PROTONIX [Concomitant]

REACTIONS (10)
  - ACUTE PULMONARY OEDEMA [None]
  - CARDIAC FAILURE CONGESTIVE [None]
  - CORONARY ARTERY DISEASE [None]
  - DYSPNOEA [None]
  - DYSPNOEA EXERTIONAL [None]
  - HYPERHIDROSIS [None]
  - HYPERTENSION [None]
  - MYOCARDIAL INFARCTION [None]
  - STRESS CARDIOMYOPATHY [None]
  - WEIGHT DECREASED [None]
